FAERS Safety Report 12165026 (Version 1)
Quarter: 2016Q1

REPORT INFORMATION
  Report Type: Report from Study
  Country: US (occurrence: US)
  Receive Date: 20160309
  Receipt Date: 20160309
  Transmission Date: 20160526
  Serious: No
  Sender: FDA-Public Use
  Company Number: US-ABBVIE-15P-163-1468174-00

PATIENT
  Age: 34 Year
  Sex: Female

DRUGS (3)
  1. ENBREL [Concomitant]
     Active Substance: ETANERCEPT
     Indication: ARTHRITIS
     Dosage: SHOT
     Route: 065
     Dates: start: 2005
  2. LUPRON DEPOT [Suspect]
     Active Substance: LEUPROLIDE ACETATE
     Indication: ENDOMETRIOSIS
     Route: 065
     Dates: start: 20150430
  3. PROGESTERONE. [Concomitant]
     Active Substance: PROGESTERONE
     Indication: ENDOMETRIOSIS
     Route: 048
     Dates: start: 20150507, end: 20150707

REACTIONS (6)
  - Dysmenorrhoea [Recovered/Resolved]
  - Menstrual disorder [Recovered/Resolved]
  - Depression [Recovered/Resolved]
  - Amenorrhoea [Unknown]
  - Depressed mood [Recovered/Resolved]
  - Crying [Recovered/Resolved]

NARRATIVE: CASE EVENT DATE: 20150507
